FAERS Safety Report 4823344-8 (Version None)
Quarter: 2005Q4

REPORT INFORMATION
  Report Type: 
  Country: None (occurrence: None)
  Receive Date: 20051107
  Receipt Date: 20051024
  Transmission Date: 20060501
  Serious: Yes (Hospitalization)
  Sender: FDA-Public Use
  Company Number: US016258

PATIENT
  Age: 52 Year
  Sex: Male

DRUGS (4)
  1. MODAFINIL [Suspect]
     Indication: SLEEP APNOEA SYNDROME
     Dosage: 300 MG QD ORAL
     Route: 048
  2. MODAFINIL [Suspect]
     Indication: SOMNOLENCE
     Dosage: 300 MG QD ORAL
     Route: 048
  3. DEROXAT [Concomitant]
  4. ATARAX [Concomitant]

REACTIONS (1)
  - DELIRIUM [None]
